FAERS Safety Report 10075751 (Version 1)
Quarter: 2014Q2

REPORT INFORMATION
  Report Type: Spontaneous
  Country: US (occurrence: None)
  Receive Date: 20140411
  Receipt Date: 20140411
  Transmission Date: 20141212
  Serious: No
  Sender: FDA-Public Use
  Company Number: None

PATIENT
  Sex: 0

DRUGS (1)
  1. OXYCODONE/ACETAMINOPHEN  5MG/325MG [Suspect]
     Indication: PAIN
     Dates: start: 20140409, end: 20140410

REACTIONS (1)
  - Unevaluable event [None]
